FAERS Safety Report 6467819-7 (Version None)
Quarter: 2009Q4

REPORT INFORMATION
  Report Type: 
  Country: None (occurrence: None)
  Receive Date: 20091202
  Receipt Date: 20091123
  Transmission Date: 20100525
  Serious: Yes (Hospitalization)
  Sender: FDA-Public Use
  Company Number: US-ELI_LILLY_AND_COMPANY-US200911006673

PATIENT
  Sex: Male
  Weight: 57.6 kg

DRUGS (16)
  1. PEMETREXED [Suspect]
     Indication: ADENOCARCINOMA
     Dosage: 900 MG, OTHER
     Route: 042
     Dates: start: 20090901
  2. CETUXIMAB [Suspect]
     Indication: ADENOCARCINOMA
     Dosage: 450 MG, OTHER
     Route: 042
     Dates: start: 20090901, end: 20090922
  3. CARBOPLATIN [Suspect]
     Indication: ADENOCARCINOMA
     Dosage: 570 MG, OTHER
     Route: 042
     Dates: start: 20090901
  4. ALBUTEROL [Concomitant]
     Indication: CHRONIC OBSTRUCTIVE PULMONARY DISEASE
     Dates: start: 20020301
  5. SPIRIVA [Concomitant]
     Indication: CHRONIC OBSTRUCTIVE PULMONARY DISEASE
     Dates: start: 20020901
  6. ADVAIR DISKUS 100/50 [Concomitant]
     Indication: CHRONIC OBSTRUCTIVE PULMONARY DISEASE
     Dates: start: 20020401
  7. LEXAPRO [Concomitant]
     Indication: DEPRESSION
     Dates: start: 20040601
  8. CALCIUM [Concomitant]
     Indication: SUPPLEMENTATION THERAPY
     Dates: start: 20050601
  9. WELLBUTRIN [Concomitant]
     Indication: DEPRESSION
     Dates: start: 20000501
  10. GABAPEN [Concomitant]
     Indication: NEURALGIA
     Dates: start: 20090301
  11. DILAUDID [Concomitant]
     Indication: PAIN
     Dates: start: 20090901
  12. FENTANYL-100 [Concomitant]
     Indication: PAIN
     Dates: start: 20090901
  13. FOLIC ACID [Concomitant]
     Indication: SUPPLEMENTATION THERAPY
     Dates: start: 20090827
  14. DECADRON /NET/ [Concomitant]
     Indication: DECREASED APPETITE
     Dates: start: 20090901
  15. STOMATOLOGICALS, MOUTH PREPARATIONS [Concomitant]
     Indication: MUCOSAL INFLAMMATION
     Dates: start: 20090915
  16. DIFLUCAN [Concomitant]
     Indication: MUCOSAL INFLAMMATION
     Dates: start: 20090922, end: 20091002

REACTIONS (1)
  - DEHYDRATION [None]
